FAERS Safety Report 17684986 (Version 1)
Quarter: 2020Q2

REPORT INFORMATION
  Report Type: Spontaneous
  Country: US (occurrence: US)
  Receive Date: 20200420
  Receipt Date: 20200420
  Transmission Date: 20200714
  Serious: Yes (Death, Life-Threatening, Other)
  Sender: FDA-Public Use
  Company Number: US-PURDUE PHARMA-USA-2020-0151128

PATIENT
  Sex: Female

DRUGS (2)
  1. DILAUDID [Suspect]
     Active Substance: HYDROMORPHONE HYDROCHLORIDE
     Indication: PRODUCT USED FOR UNKNOWN INDICATION
     Dosage: UNK
     Route: 048
  2. OXYCONTIN [Suspect]
     Active Substance: OXYCODONE HYDROCHLORIDE
     Indication: PRODUCT USED FOR UNKNOWN INDICATION
     Dosage: UNK
     Route: 048

REACTIONS (20)
  - Cardiomyopathy [Fatal]
  - Cardiac disorder [Unknown]
  - Dizziness [Unknown]
  - Sedation [Unknown]
  - Abdominal pain [Unknown]
  - Heart rate irregular [Unknown]
  - Bone disorder [Unknown]
  - Constipation [Unknown]
  - Anaphylactic reaction [Unknown]
  - Narcotic bowel syndrome [Unknown]
  - Intestinal obstruction [Unknown]
  - Pain [Unknown]
  - Abdominal distension [Unknown]
  - Depression [Unknown]
  - Hormone level abnormal [Unknown]
  - Nausea [Unknown]
  - Vomiting [Unknown]
  - Hyperaesthesia [Unknown]
  - Drug dependence [Unknown]
  - Intestinal perforation [Unknown]

NARRATIVE: CASE EVENT DATE: 20160402
